FAERS Safety Report 4578705-1 (Version None)
Quarter: 2005Q1

REPORT INFORMATION
  Report Type: 
  Country: None (occurrence: None)
  Receive Date: 20050209
  Receipt Date: 20050209
  Transmission Date: 20050727
  Serious: Yes (Life-Threatening)
  Sender: FDA-Public Use
  Company Number: None

PATIENT
  Age: 45 Year
  Sex: Female
  Weight: 69.8539 kg

DRUGS (1)
  1. ZOLOFT [Suspect]
     Indication: CHEST DISCOMFORT
     Dosage: 25MG  QD   ORAL
     Route: 048
     Dates: start: 20040801, end: 20040802

REACTIONS (1)
  - SUICIDAL IDEATION [None]
